FAERS Safety Report 19172085 (Version 5)
Quarter: 2021Q3

REPORT INFORMATION
  Report Type: Report from Study
  Country: US (occurrence: US)
  Receive Date: 20210423
  Receipt Date: 20210820
  Transmission Date: 20211014
  Serious: No
  Sender: FDA-Public Use
  Company Number: NVSC2021US085296

PATIENT
  Age: 57 Year
  Sex: Female
  Weight: 81.65 kg

DRUGS (1)
  1. KESIMPTA [Suspect]
     Active Substance: OFATUMUMAB
     Indication: PRODUCT USED FOR UNKNOWN INDICATION
     Dosage: 20 MG,QMO (BENEATH THE SKIN)
     Route: 058
     Dates: start: 20210413

REACTIONS (4)
  - Muscle tightness [Recovered/Resolved]
  - Headache [Recovered/Resolved]
  - Lethargy [Unknown]
  - Appetite disorder [Unknown]

NARRATIVE: CASE EVENT DATE: 20210511
